FAERS Safety Report 9361752 (Version 1)
Quarter: 2013Q2

REPORT INFORMATION
  Report Type: Spontaneous
  Country: ES (occurrence: ES)
  Receive Date: 20130621
  Receipt Date: 20130621
  Transmission Date: 20140414
  Serious: Yes (Other)
  Sender: FDA-Public Use
  Company Number: ES-MERCK-1306ESP009573

PATIENT
  Age: 49 Year
  Sex: Female
  Weight: 82 kg

DRUGS (9)
  1. JANUMET [Suspect]
     Indication: DIABETES MELLITUS
     Dosage: 50 MG, TID
     Route: 048
     Dates: start: 2013
  2. AMARYL [Concomitant]
     Indication: DIABETES MELLITUS
     Dosage: 4 MG, QD
     Route: 048
     Dates: start: 2013
  3. ATORVASTATIN CALCIUM [Concomitant]
     Indication: HYPERCHOLESTEROLAEMIA
     Dosage: 40 MG, QD
     Route: 048
     Dates: start: 2013, end: 20130605
  4. ENALAPRIL MALEATE [Concomitant]
     Indication: HYPERTENSION
     Dosage: 12.5 MG, QD
     Route: 048
     Dates: start: 2013, end: 20130605
  5. CONDRO SAN [Concomitant]
     Indication: OSTEOARTHRITIS
     Dosage: 400 MG, BID
     Route: 048
     Dates: start: 2013
  6. LANTUS [Concomitant]
     Dosage: 26 IU, QD 100 UNIDADES/ML
     Dates: start: 2013
  7. OMEPRAZOLE [Concomitant]
     Indication: PROPHYLAXIS
     Dosage: 20 MG, QD
     Route: 048
     Dates: start: 2013
  8. CELECOXIB [Concomitant]
     Indication: GRIEF REACTION
     Dosage: 200 MG, QD
     Route: 048
     Dates: start: 2013
  9. LORAZEPAM [Concomitant]
     Dosage: 1 MG, TID
     Route: 048
     Dates: start: 2013

REACTIONS (1)
  - Hepatic steatosis [Recovered/Resolved]
